FAERS Safety Report 13465447 (Version 1)
Quarter: 2017Q2

REPORT INFORMATION
  Report Type: Report from Study
  Country: US (occurrence: US)
  Receive Date: 20170421
  Receipt Date: 20170421
  Transmission Date: 20170830
  Serious: Yes (Other)
  Sender: FDA-Public Use
  Company Number: US-AMGEN-USASL2017053600

PATIENT
  Age: 49 Year
  Sex: Female

DRUGS (1)
  1. NEULASTA [Suspect]
     Active Substance: PEGFILGRASTIM
     Indication: PRODUCT USED FOR UNKNOWN INDICATION
     Dosage: UNK UNK, Q3WK (EVERY 3 WEEKS FOR 6 CYCLES)
     Route: 065

REACTIONS (12)
  - Pain [Unknown]
  - Ageusia [Unknown]
  - Sleep disorder [Not Recovered/Not Resolved]
  - Adverse event [Unknown]
  - Decreased appetite [Unknown]
  - Skin discolouration [Unknown]
  - Malaise [Unknown]
  - Depressed mood [Unknown]
  - Neuropathy peripheral [Not Recovered/Not Resolved]
  - Neutropenia [Unknown]
  - Cognitive disorder [Unknown]
  - Cardiomyopathy [Unknown]
